FAERS Safety Report 24781706 (Version 1)
Quarter: 2024Q4

REPORT INFORMATION
  Report Type: Spontaneous
  Country: GB (occurrence: GB)
  Receive Date: 20241227
  Receipt Date: 20241227
  Transmission Date: 20250115
  Serious: Yes (Other)
  Sender: SANDOZ
  Company Number: GB-JNJFOC-20170401099

PATIENT
  Age: 75 Year
  Sex: Female

DRUGS (24)
  1. BISOPROLOL [Suspect]
     Active Substance: BISOPROLOL
     Dosage: UNK
     Route: 065
  2. BISOPROLOL [Suspect]
     Active Substance: BISOPROLOL
     Indication: Product used for unknown indication
     Dosage: UNK (SALT NOT SPECIFIED)
     Route: 065
  3. CITALOPRAM [Suspect]
     Active Substance: CITALOPRAM
     Dosage: UNK UNK,UNK
     Route: 065
  4. CITALOPRAM [Suspect]
     Active Substance: CITALOPRAM
     Indication: Product used for unknown indication
     Dosage: UNK, DOSAGE FORM: UNSPECIFIED
     Route: 065
  5. CEREZYME [Suspect]
     Active Substance: IMIGLUCERASE
     Dosage: 800 IU, QOW
     Route: 041
     Dates: end: 20210329
  6. CEREZYME [Suspect]
     Active Substance: IMIGLUCERASE
     Indication: Product used for unknown indication
     Dosage: 800 DF,QOW, IU INTERNATIONAL UNIT(S DATE OF LAST ADMINISTRATION WAS: 15- MAR-2017 AND 29-MAR-2017.
     Route: 041
     Dates: end: 20210315
  7. BENSERAZIDE HYDROCHLORIDE\LEVODOPA [Suspect]
     Active Substance: BENSERAZIDE HYDROCHLORIDE\LEVODOPA
     Dosage: UNK UNK,UNK
     Route: 065
  8. BENSERAZIDE HYDROCHLORIDE\LEVODOPA [Suspect]
     Active Substance: BENSERAZIDE HYDROCHLORIDE\LEVODOPA
     Indication: Product used for unknown indication
     Dosage: UNK, DOSAGE FORM: UNSPECIFIED;
     Route: 065
  9. CYCLIZINE [Suspect]
     Active Substance: CYCLIZINE
     Dosage: UNK UNK,UNK
     Route: 065
  10. CYCLIZINE [Suspect]
     Active Substance: CYCLIZINE
     Indication: Product used for unknown indication
     Dosage: UNK, DOSAGE FORM: UNSPECIFIED
     Route: 065
  11. DOMPERIDONE [Suspect]
     Active Substance: DOMPERIDONE
     Indication: Product used for unknown indication
     Dosage: UNK
     Route: 065
     Dates: end: 20170329
  12. DOMPERIDONE [Suspect]
     Active Substance: DOMPERIDONE
     Dosage: UNK
     Route: 065
     Dates: end: 20210329
  13. LACTULOSE [Suspect]
     Active Substance: LACTULOSE
     Dosage: UNK UNK,UNK
     Route: 065
  14. LACTULOSE [Suspect]
     Active Substance: LACTULOSE
     Indication: Product used for unknown indication
     Dosage: UNK, DOSAGE FORM: UNSPECIFIED
     Route: 065
  15. LANSOPRAZOLE [Suspect]
     Active Substance: LANSOPRAZOLE
     Dosage: UNK UNK,UNK
     Route: 065
  16. LANSOPRAZOLE [Suspect]
     Active Substance: LANSOPRAZOLE
     Indication: Product used for unknown indication
     Dosage: UNK (DOSAGE FORM: UNSPECIFIED)
     Route: 065
  17. QUETIAPINE [Suspect]
     Active Substance: QUETIAPINE
     Indication: Product used for unknown indication
     Dosage: DOSAGE FORM: UNSPECIFIED
     Route: 065
  18. RIVASTIGMINE [Suspect]
     Active Substance: RIVASTIGMINE
     Indication: Product used for unknown indication
     Dosage: UNK, DOSAGE FORM: UNSPECIFIED
     Route: 065
  19. ROPINIROLE [Suspect]
     Active Substance: ROPINIROLE
     Indication: Product used for unknown indication
     Dosage: 1 DOSAGE FORM, BIW
     Route: 065
  20. ROPINIROLE [Suspect]
     Active Substance: ROPINIROLE
     Dosage: UNK
     Route: 065
  21. SENNA [Suspect]
     Active Substance: SENNA LEAF\SENNOSIDES\SENNOSIDES A AND B
     Dosage: UNK
     Route: 065
  22. SENNA [Suspect]
     Active Substance: SENNA LEAF\SENNOSIDES\SENNOSIDES A AND B
     Indication: Product used for unknown indication
     Dosage: UNK, DOSAGE FORM: UNKNOWN
     Route: 065
  23. SENNA LEAF [Suspect]
     Active Substance: SENNA LEAF
     Indication: Product used for unknown indication
     Dosage: UNK
     Route: 065
  24. BENSERAZIDE HYDROCHLORIDE\LEVODOPA [Concomitant]
     Active Substance: BENSERAZIDE HYDROCHLORIDE\LEVODOPA
     Indication: Product used for unknown indication
     Dosage: UNK
     Route: 065

REACTIONS (3)
  - Parkinson^s disease [Unknown]
  - Dizziness [Unknown]
  - Dizziness [Unknown]
